FAERS Safety Report 22694363 (Version 4)
Quarter: 2023Q4

REPORT INFORMATION
  Report Type: Report from Study
  Country: NL (occurrence: NL)
  Receive Date: 20230711
  Receipt Date: 20231231
  Transmission Date: 20240110
  Serious: Yes (Other)
  Sender: FDA-Public Use
  Company Number: NL-ABBVIE-5319859

PATIENT
  Sex: Female

DRUGS (8)
  1. CARBIDOPA\LEVODOPA [Suspect]
     Active Substance: CARBIDOPA\LEVODOPA
     Indication: Parkinson^s disease
     Dosage: MD: 6.0ML CD: 2.9ML ED: 1.5 ML,5 TO 6 TIMES A WEEK, REMAINS AT 16 HOURS
     Route: 050
     Dates: start: 20230706, end: 20231128
  2. CARBIDOPA\LEVODOPA [Suspect]
     Active Substance: CARBIDOPA\LEVODOPA
     Dosage: LAST ADMIN DATE WAS 2023
     Route: 050
     Dates: start: 20230516
  3. CARBIDOPA\LEVODOPA [Suspect]
     Active Substance: CARBIDOPA\LEVODOPA
     Route: 050
  4. CARBIDOPA\LEVODOPA [Suspect]
     Active Substance: CARBIDOPA\LEVODOPA
     Dosage: MD:6.0ML; CD:2.9ML/H; ED:1.5ML; CND:1.4ML/H; END:1.5ML;?REMAINS AT 24 HOURS.
     Route: 050
     Dates: start: 20231128
  5. CARBIDOPA\LEVODOPA [Suspect]
     Active Substance: CARBIDOPA\LEVODOPA
     Route: 050
  6. CARBIDOPA\LEVODOPA [Suspect]
     Active Substance: CARBIDOPA\LEVODOPA
     Route: 050
  7. CLOZAPINE [Concomitant]
     Active Substance: CLOZAPINE
     Indication: Hallucination
  8. POLYETHYLENE GLYCOLS [Concomitant]
     Active Substance: POLYETHYLENE GLYCOLS
     Indication: Bowel movement irregularity
     Dosage: HALF OF A SACHET PER DAY; GOING TO BE INCREASED

REACTIONS (28)
  - Cochlea implant [Not Recovered/Not Resolved]
  - Musculoskeletal stiffness [Not Recovered/Not Resolved]
  - Weight decreased [Recovered/Resolved]
  - Tremor [Not Recovered/Not Resolved]
  - Mastication disorder [Not Recovered/Not Resolved]
  - Decreased appetite [Recovered/Resolved]
  - Bradykinesia [Not Recovered/Not Resolved]
  - Gait disturbance [Not Recovered/Not Resolved]
  - On and off phenomenon [Not Recovered/Not Resolved]
  - Dyschezia [Not Recovered/Not Resolved]
  - Restlessness [Not Recovered/Not Resolved]
  - Confusional state [Recovering/Resolving]
  - Hallucination [Not Recovered/Not Resolved]
  - Freezing phenomenon [Recovering/Resolving]
  - Muscle twitching [Recovering/Resolving]
  - Urinary incontinence [Not Recovered/Not Resolved]
  - Fatigue [Not Recovered/Not Resolved]
  - Derealisation [Recovering/Resolving]
  - Inappropriate schedule of product administration [Recovered/Resolved]
  - Constipation [Not Recovered/Not Resolved]
  - Dysphagia [Not Recovered/Not Resolved]
  - Overweight [Not Recovered/Not Resolved]
  - Choking [Not Recovered/Not Resolved]
  - Cough [Not Recovered/Not Resolved]
  - Unevaluable event [Recovering/Resolving]
  - Mental impairment [Not Recovered/Not Resolved]
  - Abnormal dreams [Not Recovered/Not Resolved]
  - Influenza [Recovered/Resolved]

NARRATIVE: CASE EVENT DATE: 20230101
